FAERS Safety Report 19175127 (Version 1)
Quarter: 2021Q2

REPORT INFORMATION
  Report Type: Spontaneous
  Country: US (occurrence: US)
  Receive Date: 20210423
  Receipt Date: 20210423
  Transmission Date: 20210717
  Serious: Yes (Other)
  Sender: FDA-Public Use
  Company Number: US-009507513-2104USA006859

PATIENT
  Age: 58 Year
  Sex: Male

DRUGS (1)
  1. TEMODAR [Suspect]
     Active Substance: TEMOZOLOMIDE
     Dosage: UNK

REACTIONS (3)
  - Glioblastoma multiforme [Recovered/Resolved]
  - Glioblastoma multiforme [Unknown]
  - Metastases to meninges [Unknown]

NARRATIVE: CASE EVENT DATE: 202102
